FAERS Safety Report 7301599-8 (Version None)
Quarter: 2011Q1

REPORT INFORMATION
  Report Type: 
  Country: None (occurrence: None)
  Receive Date: 20110218
  Receipt Date: 20101227
  Transmission Date: 20110831
  Serious: Yes (Other)
  Sender: FDA-Public Use
  Company Number: US-BAYER-201025794NA

PATIENT
  Sex: Female

DRUGS (8)
  1. VICODIN [Concomitant]
     Indication: PAIN
  2. SYNTHROID [Concomitant]
     Indication: HYPOTHYROIDISM
  3. YAZ [Suspect]
     Indication: PRODUCT USED FOR UNKNOWN INDICATION
     Route: 048
  4. PEPCID [Concomitant]
     Indication: DYSPEPSIA
  5. OCELLA [Suspect]
     Indication: PRODUCT USED FOR UNKNOWN INDICATION
     Route: 048
  6. GAS X [Concomitant]
  7. YASMIN [Suspect]
     Indication: PRODUCT USED FOR UNKNOWN INDICATION
     Route: 048
  8. ONE A DAY [Concomitant]

REACTIONS (8)
  - BILIARY COLIC [None]
  - BACK PAIN [None]
  - ABDOMINAL PAIN UPPER [None]
  - DYSPNOEA [None]
  - CHEST PAIN [None]
  - INJURY [None]
  - NAUSEA [None]
  - CHOLELITHIASIS [None]
